FAERS Safety Report 4607287-0 (Version None)
Quarter: 2005Q1

REPORT INFORMATION
  Report Type: 
  Country: None (occurrence: None)
  Receive Date: 20050311
  Receipt Date: 20050311
  Transmission Date: 20050727
  Serious: Yes (Death)
  Sender: FDA-Public Use
  Company Number: None

PATIENT
  Age: 37 Year
  Sex: Male
  Weight: 92.5338 kg

DRUGS (1)
  1. CLOZARIL [Suspect]
     Indication: SCHIZOPHRENIA
     Dosage: 25 MG BID
     Dates: start: 20040825, end: 20040909

REACTIONS (3)
  - ASPIRATION [None]
  - MYOCARDITIS [None]
  - RESPIRATORY ARREST [None]
